FAERS Safety Report 9000164 (Version 1)
Quarter: 2013Q1

REPORT INFORMATION
  Report Type: Spontaneous
  Country: US (occurrence: US)
  Receive Date: 20130102
  Receipt Date: 20130102
  Transmission Date: 20140127
  Serious: Yes (Other)
  Sender: FDA-Public Use
  Company Number: US-JNJFOC-20121202557

PATIENT
  Sex: Female

DRUGS (1)
  1. REMICADE [Suspect]
     Indication: RHEUMATOID ARTHRITIS
     Route: 042

REACTIONS (5)
  - Multiple sclerosis [Unknown]
  - Fall [Recovered/Resolved]
  - Paraesthesia [Recovered/Resolved]
  - Drug effect decreased [Unknown]
  - Balance disorder [Recovered/Resolved]
